FAERS Safety Report 24545002 (Version 1)
Quarter: 2024Q4

REPORT INFORMATION
  Report Type: Spontaneous
  Country: BR (occurrence: BR)
  Receive Date: 20241024
  Receipt Date: 20241024
  Transmission Date: 20250114
  Serious: Yes (Other)
  Sender: CHEPLAPHARM
  Company Number: BR-CHEPLA-2024013361

PATIENT
  Sex: Female

DRUGS (1)
  1. CLONAZEPAM [Suspect]
     Active Substance: CLONAZEPAM
     Indication: Product used for unknown indication
     Dosage: MAH REF 115240011, SHE HAD BOUGHT TWO BOTTLES OF RIVOTRIL 2.5 MG/ML, CONTINUOUS USE OF RIVOTRIL F...
     Dates: start: 202405

REACTIONS (4)
  - Intracranial aneurysm [Not Recovered/Not Resolved]
  - Blood pressure decreased [Unknown]
  - Headache [Unknown]
  - Drug ineffective [Not Recovered/Not Resolved]
